FAERS Safety Report 8197301-0 (Version None)
Quarter: 2012Q1

REPORT INFORMATION
  Report Type: 
  Country: None (occurrence: None)
  Receive Date: 20120309
  Receipt Date: 20120306
  Transmission Date: 20120608
  Serious: No
  Sender: FDA-Public Use
  Company Number: US-PFIZER INC-2012019910

PATIENT
  Sex: Female
  Weight: 90.703 kg

DRUGS (5)
  1. MOBIC [Suspect]
     Indication: ARTHRITIS
     Dosage: 15 MG, 2X/DAY
     Route: 048
     Dates: start: 20120101, end: 20120101
  2. NAPROXEN [Concomitant]
     Indication: ARTHROPATHY
     Dosage: 500 MG, UNK
  3. CELEBREX [Suspect]
     Indication: ARTHRITIS
     Dosage: 200 MG, 1X/DAY
     Route: 048
     Dates: start: 20110901
  4. CITALOPRAM [Concomitant]
     Dosage: UNK
  5. WELLBUTRIN [Concomitant]
     Dosage: UNK

REACTIONS (1)
  - ARTHRALGIA [None]
